FAERS Safety Report 10064337 (Version 2)
Quarter: 2014Q3

REPORT INFORMATION
  Report Type: Spontaneous
  Country: US (occurrence: US)
  Receive Date: 20140408
  Receipt Date: 20140731
  Transmission Date: 20150326
  Serious: Yes (Hospitalization, Disabling)
  Sender: FDA-Public Use
  Company Number: US-BAYER-2014-050313

PATIENT
  Age: 33 Year
  Sex: Female
  Weight: 50.79 kg

DRUGS (3)
  1. BEYAZ [Suspect]
     Active Substance: DROSPIRENONE\ETHINYL ESTRADIOL\LEVOMEFOLATE CALCIUM
  2. YASMIN [Suspect]
     Active Substance: DROSPIRENONE\ETHINYL ESTRADIOL
     Indication: CONTRACEPTION
     Dosage: UNK
     Route: 048
     Dates: start: 2008, end: 2013
  3. YAZ [Suspect]
     Active Substance: DROSPIRENONE\ETHINYL ESTRADIOL
     Indication: CONTRACEPTION
     Dosage: UNK
     Route: 048
     Dates: start: 2008, end: 2013

REACTIONS (14)
  - Deep vein thrombosis [None]
  - Anhedonia [None]
  - Injury [None]
  - Pulmonary embolism [None]
  - Bladder disorder [None]
  - Pain in extremity [None]
  - Anxiety [None]
  - Ovarian cyst [None]
  - Lung disorder [None]
  - Peripheral swelling [None]
  - Thrombosis [None]
  - Venous injury [None]
  - Limb injury [None]
  - Deformity [None]

NARRATIVE: CASE EVENT DATE: 2014
